FAERS Safety Report 9350998 (Version 1)
Quarter: 2013Q2

REPORT INFORMATION
  Report Type: Spontaneous
  Country: US (occurrence: US)
  Receive Date: 20130617
  Receipt Date: 20130617
  Transmission Date: 20140414
  Serious: Yes (Other)
  Sender: FDA-Public Use
  Company Number: US-BRISTOL-MYERS SQUIBB COMPANY-18998245

PATIENT
  Sex: Male

DRUGS (7)
  1. ABILIFY [Suspect]
  2. METFORMIN HCL [Suspect]
  3. PROZAC [Suspect]
  4. QUINAPRIL [Suspect]
  5. AMLODIPINE [Suspect]
  6. LIPITOR [Suspect]
  7. DOXAZOSIN [Suspect]

REACTIONS (1)
  - Atrial fibrillation [Recovered/Resolved]
